FAERS Safety Report 6767888-0 (Version None)
Quarter: 2010Q2

REPORT INFORMATION
  Report Type: 
  Country: None (occurrence: None)
  Receive Date: 20100614
  Receipt Date: 20100614
  Transmission Date: 20101027
  Serious: Yes (Other)
  Sender: FDA-Public Use
  Company Number: None

PATIENT
  Age: 3 Year
  Sex: Female
  Weight: 15.4223 kg

DRUGS (1)
  1. CHILDREN'S TYLENOL AGES 2-11 MCNEIL-PPC [Suspect]
     Indication: PYREXIA
     Dosage: 1 TSP EVERY 4 HOURS PO
     Route: 048
     Dates: start: 20100427, end: 20100429

REACTIONS (3)
  - ABDOMINAL PAIN UPPER [None]
  - PRODUCT QUALITY ISSUE [None]
  - SCREAMING [None]
